FAERS Safety Report 22388917 (Version 1)
Quarter: 2023Q2

REPORT INFORMATION
  Report Type: Spontaneous
  Country: US (occurrence: US)
  Receive Date: 20230531
  Receipt Date: 20230531
  Transmission Date: 20230721
  Serious: Yes (Hospitalization, Other)
  Sender: FDA-Public Use
  Company Number: US-APOTEX-2023AP008439

PATIENT
  Age: 74 Year
  Sex: Female

DRUGS (3)
  1. CITALOPRAM [Suspect]
     Active Substance: CITALOPRAM HYDROBROMIDE
     Indication: Product used for unknown indication
     Dosage: 3 DOSAGE FORM
     Route: 065
  2. ANAGRELIDE [Suspect]
     Active Substance: ANAGRELIDE
     Indication: Product used for unknown indication
     Dosage: 54 DOSAGE FORM
     Route: 065
  3. CLONAZEPAM [Suspect]
     Active Substance: CLONAZEPAM
     Indication: Product used for unknown indication
     Dosage: 3 DOSAGE FORM
     Route: 065

REACTIONS (9)
  - Intentional overdose [Recovered/Resolved]
  - Suicide attempt [Recovered/Resolved]
  - Fall [Recovered/Resolved]
  - Periorbital haemorrhage [Recovered/Resolved]
  - Epistaxis [Recovered/Resolved]
  - Somnolence [Recovered/Resolved]
  - Hypotension [Recovered/Resolved]
  - Sinus tachycardia [Recovered/Resolved]
  - Orthostatic hypotension [Recovered/Resolved]
